FAERS Safety Report 4755828-5 (Version None)
Quarter: 2005Q3

REPORT INFORMATION
  Report Type: 
  Country: None (occurrence: None)
  Receive Date: 20050830
  Receipt Date: 20050415
  Transmission Date: 20060218
  Serious: No
  Sender: FDA-Public Use
  Company Number: US-BRISTOL-MYERS SQUIBB COMPANY-12935375

PATIENT
  Age: 50 Year
  Sex: Female
  Weight: 86 kg

DRUGS (13)
  1. ERBITUX [Suspect]
     Indication: COLORECTAL CANCER METASTATIC
     Dosage: INTERRUPTED FOR TWO WEEKS.
     Route: 042
  2. BENADRYL [Concomitant]
     Indication: PREMEDICATION
  3. DECADRON [Concomitant]
     Indication: PREMEDICATION
  4. PEPCID [Concomitant]
     Indication: PREMEDICATION
  5. CALCIUM GLUCONATE [Concomitant]
  6. CAMPTOSAR [Concomitant]
  7. CLIMARA [Concomitant]
  8. COUMADIN [Concomitant]
  9. ESTROGEN [Concomitant]
  10. FENTANYL [Concomitant]
  11. IMODIUM [Concomitant]
  12. MULTI-VITAMIN [Concomitant]
  13. ZANTAC [Concomitant]

REACTIONS (1)
  - MUCOSAL INFLAMMATION [None]
